FAERS Safety Report 10053466 (Version 2)
Quarter: 2014Q2

REPORT INFORMATION
  Report Type: Spontaneous
  Country: US (occurrence: US)
  Receive Date: 20140402
  Receipt Date: 20140520
  Transmission Date: 20141212
  Serious: Yes (Other)
  Sender: FDA-Public Use
  Company Number: US-ASTRAZENECA-2014SE21514

PATIENT
  Age: 17 Year
  Sex: Male
  Weight: 111.1 kg

DRUGS (39)
  1. QUETIAPINE FUMARATE [Suspect]
     Indication: AUTISM
     Route: 048
     Dates: start: 20140207
  2. QUETIAPINE FUMARATE [Suspect]
     Indication: OBSESSIVE-COMPULSIVE DISORDER
     Route: 048
     Dates: start: 20140207
  3. QUETIAPINE FUMARATE [Suspect]
     Indication: ANXIETY
     Route: 048
     Dates: start: 20140207
  4. QUETIAPINE FUMARATE [Suspect]
     Indication: DEPRESSION
     Route: 048
     Dates: start: 20140207
  5. QUETIAPINE FUMARATE [Suspect]
     Indication: AUTISM
     Route: 048
  6. QUETIAPINE FUMARATE [Suspect]
     Indication: OBSESSIVE-COMPULSIVE DISORDER
     Route: 048
  7. QUETIAPINE FUMARATE [Suspect]
     Indication: ANXIETY
     Route: 048
  8. QUETIAPINE FUMARATE [Suspect]
     Indication: DEPRESSION
     Route: 048
  9. QUETIAPINE FUMARATE [Suspect]
     Indication: AUTISM
     Route: 048
  10. QUETIAPINE FUMARATE [Suspect]
     Indication: OBSESSIVE-COMPULSIVE DISORDER
     Route: 048
  11. QUETIAPINE FUMARATE [Suspect]
     Indication: ANXIETY
     Route: 048
  12. QUETIAPINE FUMARATE [Suspect]
     Indication: DEPRESSION
     Route: 048
  13. QUETIAPINE FUMARATE [Suspect]
     Indication: AUTISM
     Route: 048
  14. QUETIAPINE FUMARATE [Suspect]
     Indication: OBSESSIVE-COMPULSIVE DISORDER
     Route: 048
  15. QUETIAPINE FUMARATE [Suspect]
     Indication: ANXIETY
     Route: 048
  16. QUETIAPINE FUMARATE [Suspect]
     Indication: DEPRESSION
     Route: 048
  17. QUETIAPINE FUMARATE [Suspect]
     Indication: AUTISM
     Route: 048
  18. QUETIAPINE FUMARATE [Suspect]
     Indication: OBSESSIVE-COMPULSIVE DISORDER
     Route: 048
  19. QUETIAPINE FUMARATE [Suspect]
     Indication: ANXIETY
     Route: 048
  20. QUETIAPINE FUMARATE [Suspect]
     Indication: DEPRESSION
     Route: 048
  21. LEXAPRO [Concomitant]
     Indication: AUTISM
     Route: 048
     Dates: start: 2010
  22. LEXAPRO [Concomitant]
     Indication: IMPULSE-CONTROL DISORDER
     Route: 048
     Dates: start: 2010
  23. LEXAPRO [Concomitant]
     Indication: DEPRESSION
     Route: 048
     Dates: start: 2010
  24. LEXAPRO [Concomitant]
     Indication: ANXIETY
     Route: 048
     Dates: start: 2010
  25. LEXAPRO [Concomitant]
     Indication: PSYCHOTIC BEHAVIOUR
     Route: 048
     Dates: start: 2010
  26. INTUNIZ ER [Concomitant]
     Indication: ATTENTION DEFICIT/HYPERACTIVITY DISORDER
     Route: 048
     Dates: start: 2005
  27. INTUNIZ ER [Concomitant]
     Indication: AUTISM
     Route: 048
     Dates: start: 2005
  28. INTUNIZ ER [Concomitant]
     Indication: IMPULSE-CONTROL DISORDER
     Route: 048
     Dates: start: 2005
  29. INTUNIZ ER [Concomitant]
     Indication: ATTENTION DEFICIT/HYPERACTIVITY DISORDER
     Route: 048
     Dates: start: 2005
  30. INTUNIZ ER [Concomitant]
     Indication: ATTENTION DEFICIT/HYPERACTIVITY DISORDER
     Route: 048
     Dates: start: 2005
  31. TENEX [Concomitant]
     Indication: ATTENTION DEFICIT/HYPERACTIVITY DISORDER
     Route: 048
     Dates: start: 2005
  32. TENEX [Concomitant]
     Indication: IMPULSE-CONTROL DISORDER
     Route: 048
     Dates: start: 2005
  33. TENEX [Concomitant]
     Indication: ATTENTION DEFICIT/HYPERACTIVITY DISORDER
     Route: 048
     Dates: start: 2005
  34. TENEX [Concomitant]
     Indication: ATTENTION DEFICIT/HYPERACTIVITY DISORDER
     Route: 048
     Dates: start: 2005
  35. EPI PEN [Concomitant]
     Indication: EMERGENCY CARE
  36. RISPERIDONE [Concomitant]
  37. ABILIFY [Concomitant]
  38. ROCEPHIN [Concomitant]
  39. KLONOPIN [Concomitant]
     Indication: AUTISM
     Route: 048

REACTIONS (13)
  - Painful erection [Unknown]
  - Suicidal ideation [Unknown]
  - Aggression [Unknown]
  - Pruritus [Unknown]
  - Adverse event [Unknown]
  - Lip disorder [Unknown]
  - Asthma [Unknown]
  - Bronchitis [Unknown]
  - Logorrhoea [Unknown]
  - Abnormal behaviour [Unknown]
  - Autism [Recovered/Resolved]
  - Respiratory tract congestion [Unknown]
  - Muscle twitching [Recovered/Resolved]
